FAERS Safety Report 16616278 (Version 1)
Quarter: 2019Q3

REPORT INFORMATION
  Report Type: Spontaneous
  Country: US (occurrence: US)
  Receive Date: 20190610
  Receipt Date: 20190610
  Transmission Date: 20191004
  Serious: No
  Sender: FDA-Public Use
  Company Number: None

PATIENT
  Age: 75 Year
  Sex: Female

DRUGS (1)
  1. SPRYCEL [Suspect]
     Active Substance: DASATINIB

REACTIONS (7)
  - Stomatitis [None]
  - Diarrhoea [None]
  - Hyperhidrosis [None]
  - Weight increased [None]
  - Hot flush [None]
  - Weight decreased [None]
  - Fatigue [None]

NARRATIVE: CASE EVENT DATE: 20190610
